FAERS Safety Report 4755976-X (Version None)
Quarter: 2005Q3

REPORT INFORMATION
  Report Type: 
  Country: None (occurrence: None)
  Receive Date: 20050825
  Receipt Date: 20050617
  Transmission Date: 20060218
  Serious: Yes (Disabling)
  Sender: FDA-Public Use
  Company Number: WAES 0506USA02748

PATIENT
  Age: 63 Year
  Sex: Male
  Weight: 93.441 kg

DRUGS (4)
  1. VYTORIN [Suspect]
     Indication: HYPERLIPIDAEMIA
     Dosage: 10-40 MG/DAILY/PO
     Route: 048
     Dates: start: 20050419, end: 20050603
  2. ALLEGRA-D [Concomitant]
  3. SPIRIVA [Concomitant]
  4. ASPIRIN [Concomitant]

REACTIONS (3)
  - ANOREXIA [None]
  - FATIGUE [None]
  - MYALGIA [None]
